FAERS Safety Report 19839499 (Version 1)
Quarter: 2021Q3

REPORT INFORMATION
  Report Type: Spontaneous
  Country: US (occurrence: US)
  Receive Date: 20210914
  Receipt Date: 20210914
  Transmission Date: 20211014
  Serious: No
  Sender: FDA-Public Use
  Company Number: None

PATIENT
  Age: 57 Year
  Sex: Male
  Weight: 106.59 kg

DRUGS (1)
  1. FOSINOPRIL (FOSINOPRIL NA 40MG TAB) [Suspect]
     Active Substance: FOSINOPRIL
     Indication: HYPERTENSION
     Route: 048
     Dates: start: 20190803, end: 20210610

REACTIONS (1)
  - Angioedema [None]

NARRATIVE: CASE EVENT DATE: 20210610
